FAERS Safety Report 9476375 (Version 2)
Quarter: 2013Q3

REPORT INFORMATION
  Report Type: Spontaneous
  Country: CN (occurrence: CN)
  Receive Date: 20130826
  Receipt Date: 20130826
  Transmission Date: 20140515
  Serious: Yes (Other)
  Sender: FDA-Public Use
  Company Number: CN-PFIZER INC-2013214528

PATIENT
  Age: 61 Year
  Sex: Male

DRUGS (2)
  1. PANTOLOC [Suspect]
     Indication: ABDOMINAL PAIN UPPER
     Dosage: 40 MG, 2X/DAY, GTT
     Route: 042
     Dates: start: 20111010, end: 20111011
  2. PANTOLOC [Suspect]
     Indication: GASTRIC MUCOSAL LESION
     Dosage: 40 MG, 2X/DAY, GTT
     Route: 042
     Dates: start: 20111012, end: 20111017

REACTIONS (1)
  - Visual impairment [Not Recovered/Not Resolved]
